FAERS Safety Report 10515826 (Version 1)
Quarter: 2014Q4

REPORT INFORMATION
  Report Type: Spontaneous
  Country: US (occurrence: None)
  Receive Date: 20141001
  Receipt Date: 20141001
  Transmission Date: 20150528
  Serious: Yes (Hospitalization)
  Sender: FDA-Public Use
  Company Number: 2014000609

PATIENT
  Sex: Male

DRUGS (3)
  1. TEGRETOL (CARBAMAZEPINE) [Concomitant]
  2. VIMPAT [Suspect]
     Active Substance: LACOSAMIDE
     Indication: SEIZURE
     Dosage: 200 MG, 2X/DAY (BID) , ORAL
     Route: 048
     Dates: start: 2012
  3. DILANTIN (PHENYTOIN SODIUM) [Concomitant]
     Active Substance: PHENYTOIN SODIUM

REACTIONS (2)
  - Head injury [None]
  - Seizure [None]

NARRATIVE: CASE EVENT DATE: 2014
